FAERS Safety Report 20850866 (Version 1)
Quarter: 2022Q2

REPORT INFORMATION
  Report Type: Spontaneous
  Country: US (occurrence: None)
  Receive Date: 20220518
  Receipt Date: 20220518
  Transmission Date: 20220721
  Serious: Yes (unspecified)
  Sender: FDA-Public Use
  Company Number: None

PATIENT
  Age: 21 Year
  Sex: Male
  Weight: 61.2 kg

DRUGS (7)
  1. BEBTELOVIMAB [Suspect]
     Active Substance: BEBTELOVIMAB
     Indication: COVID-19
     Dates: start: 20220514, end: 20220514
  2. MYFORTIC [Concomitant]
     Active Substance: MYCOPHENOLATE SODIUM
     Dates: start: 20220514
  3. PROGRAF [Concomitant]
     Active Substance: TACROLIMUS
     Dates: start: 20220514
  4. PREDNISONE [Concomitant]
     Active Substance: PREDNISONE
     Dates: start: 20220514
  5. LISINOPRIL [Concomitant]
     Active Substance: LISINOPRIL
     Dates: start: 20220514
  6. RENVELA [Concomitant]
     Active Substance: SEVELAMER CARBONATE
     Dates: start: 20220514
  7. BACTRIM [Concomitant]
     Active Substance: SULFAMETHOXAZOLE\TRIMETHOPRIM
     Dates: start: 20220514

REACTIONS (1)
  - Urticaria [None]

NARRATIVE: CASE EVENT DATE: 20220514
